FAERS Safety Report 4518040-0 (Version None)
Quarter: 2004Q4

REPORT INFORMATION
  Report Type: 
  Country: None (occurrence: None)
  Receive Date: 20041203
  Receipt Date: 20041103
  Transmission Date: 20050328
  Serious: Yes (Other)
  Sender: FDA-Public Use
  Company Number: US-GLAXOSMITHKLINE-A0532535A

PATIENT
  Age: 48 Year
  Sex: Female
  Weight: 45.5 kg

DRUGS (2)
  1. ADVAIR DISKUS 100/50 [Suspect]
     Indication: ASTHMA
     Dosage: 1PUFF TWICE PER DAY
     Route: 055
     Dates: start: 20030815
  2. ALBUTEROL [Concomitant]
     Dosage: 4PUFF AS REQUIRED
     Route: 055

REACTIONS (3)
  - BLINDNESS [None]
  - CATARACT [None]
  - VISION BLURRED [None]
